FAERS Safety Report 9533669 (Version 4)
Quarter: 2014Q2

REPORT INFORMATION
  Report Type: Spontaneous
  Country: BR (occurrence: BR)
  Receive Date: 20130918
  Receipt Date: 20140522
  Transmission Date: 20141212
  Serious: Yes (Death, Hospitalization, Other)
  Sender: FDA-Public Use
  Company Number: BR-JNJFOC-20130907192

PATIENT
  Age: 83 Year
  Sex: Male

DRUGS (7)
  1. ZYTIGA [Suspect]
     Indication: METASTASES TO BONE
     Route: 048
  2. ZYTIGA [Suspect]
     Indication: METASTASES TO BONE
     Route: 048
     Dates: start: 201307
  3. ZYTIGA [Suspect]
     Indication: HORMONE-REFRACTORY PROSTATE CANCER
     Route: 048
  4. ZYTIGA [Suspect]
     Indication: HORMONE-REFRACTORY PROSTATE CANCER
     Route: 048
     Dates: start: 201307
  5. PREDNISONE [Concomitant]
     Indication: PROSTATE CANCER
     Route: 065
  6. RADIOTHERAPY [Concomitant]
     Indication: METASTASES TO BONE
     Route: 065
  7. RADIOTHERAPY [Concomitant]
     Indication: PROSTATE CANCER
     Route: 065

REACTIONS (9)
  - Prostate cancer metastatic [Fatal]
  - Hypokalaemia [Recovered/Resolved]
  - Arrhythmia [Unknown]
  - Left ventricular failure [Recovered/Resolved]
  - Pleural effusion [Recovered/Resolved]
  - Asthenia [Unknown]
  - Therapeutic response changed [Not Recovered/Not Resolved]
  - Prostatic specific antigen increased [Not Recovered/Not Resolved]
  - Off label use [Unknown]
